FAERS Safety Report 10132962 (Version 1)
Quarter: 2014Q2

REPORT INFORMATION
  Report Type: Spontaneous
  Country: US (occurrence: US)
  Receive Date: 20140428
  Receipt Date: 20140428
  Transmission Date: 20141212
  Serious: Yes (Hospitalization)
  Sender: FDA-Public Use
  Company Number: US-JNJFOC-20140411956

PATIENT
  Age: 9 Year
  Sex: Male
  Weight: 79.38 kg

DRUGS (32)
  1. TOPAMAX [Suspect]
     Indication: MIGRAINE PROPHYLAXIS
     Route: 048
     Dates: start: 20130601, end: 201308
  2. TOPAMAX [Suspect]
     Indication: MIGRAINE PROPHYLAXIS
     Route: 048
     Dates: start: 20130601, end: 201306
  3. TOPAMAX [Suspect]
     Indication: MIGRAINE PROPHYLAXIS
     Route: 048
  4. TOPAMAX [Suspect]
     Indication: MIGRAINE PROPHYLAXIS
     Route: 048
     Dates: start: 201308, end: 2013
  5. TOPAMAX [Suspect]
     Indication: MIGRAINE PROPHYLAXIS
     Route: 048
     Dates: start: 2013, end: 2013
  6. TOPAMAX [Suspect]
     Indication: MIGRAINE PROPHYLAXIS
     Route: 048
     Dates: start: 2014, end: 2014
  7. TOPAMAX [Suspect]
     Indication: MIGRAINE PROPHYLAXIS
     Route: 048
     Dates: start: 2014, end: 2014
  8. TOPAMAX [Suspect]
     Indication: MIGRAINE PROPHYLAXIS
     Route: 048
     Dates: start: 2006
  9. TOPAMAX [Suspect]
     Indication: MIGRAINE PROPHYLAXIS
     Route: 048
     Dates: start: 2014
  10. TOPAMAX [Suspect]
     Indication: MIGRAINE PROPHYLAXIS
     Route: 048
     Dates: start: 2014
  11. TOPAMAX [Suspect]
     Indication: MIGRAINE PROPHYLAXIS
     Route: 048
     Dates: start: 201308, end: 2013
  12. TOPAMAX [Suspect]
     Indication: MIGRAINE PROPHYLAXIS
     Route: 048
     Dates: start: 200611, end: 201104
  13. TOPAMAX [Suspect]
     Indication: MIGRAINE PROPHYLAXIS
     Route: 048
     Dates: start: 201306, end: 201308
  14. TOPAMAX [Suspect]
     Indication: MIGRAINE PROPHYLAXIS
     Dosage: 100MG+UNKNOWN FORMULATION TWICE DAILY.
     Route: 048
     Dates: start: 201104, end: 20130601
  15. TOPAMAX [Suspect]
     Indication: EPILEPSY
     Route: 048
     Dates: start: 20130601, end: 201308
  16. TOPAMAX [Suspect]
     Indication: EPILEPSY
     Route: 048
  17. TOPAMAX [Suspect]
     Indication: EPILEPSY
     Route: 048
     Dates: start: 2014, end: 2014
  18. TOPAMAX [Suspect]
     Indication: EPILEPSY
     Route: 048
     Dates: start: 2014, end: 2014
  19. TOPAMAX [Suspect]
     Indication: EPILEPSY
     Route: 048
     Dates: start: 201308, end: 2013
  20. TOPAMAX [Suspect]
     Indication: EPILEPSY
     Route: 048
     Dates: start: 20130601, end: 201306
  21. TOPAMAX [Suspect]
     Indication: EPILEPSY
     Route: 048
     Dates: start: 2006
  22. TOPAMAX [Suspect]
     Indication: EPILEPSY
     Route: 048
     Dates: start: 201308, end: 2013
  23. TOPAMAX [Suspect]
     Indication: EPILEPSY
     Route: 048
     Dates: start: 200611, end: 201104
  24. TOPAMAX [Suspect]
     Indication: EPILEPSY
     Route: 048
     Dates: start: 201306, end: 201308
  25. TOPAMAX [Suspect]
     Indication: EPILEPSY
     Route: 048
     Dates: start: 2013, end: 2013
  26. TOPAMAX [Suspect]
     Indication: EPILEPSY
     Route: 048
     Dates: start: 2014
  27. TOPAMAX [Suspect]
     Indication: EPILEPSY
     Dosage: 100MG+UNKNOWN FORMULATION TWICE DAILY.
     Route: 048
     Dates: start: 201104, end: 20130601
  28. TOPAMAX [Suspect]
     Indication: EPILEPSY
     Route: 048
     Dates: start: 2014
  29. HALDOL [Suspect]
     Indication: PRODUCT USED FOR UNKNOWN INDICATION
     Route: 065
     Dates: start: 201309, end: 2013
  30. DIAZEPAM [Suspect]
     Indication: PRODUCT USED FOR UNKNOWN INDICATION
     Route: 065
  31. KEPPRA [Suspect]
     Indication: PRODUCT USED FOR UNKNOWN INDICATION
     Route: 065
     Dates: start: 200610, end: 200611
  32. TEGRETOL [Suspect]
     Indication: PRODUCT USED FOR UNKNOWN INDICATION
     Route: 065
     Dates: end: 200610

REACTIONS (14)
  - Hospitalisation [Unknown]
  - Shunt malfunction [Unknown]
  - Convulsion [Recovered/Resolved]
  - Generalised tonic-clonic seizure [Unknown]
  - Adverse event [Unknown]
  - Aggression [Unknown]
  - Convulsion [Recovered/Resolved]
  - Schizophrenia [Unknown]
  - Abnormal behaviour [Unknown]
  - Insomnia [Unknown]
  - Dyskinesia [Unknown]
  - Feeding disorder [Unknown]
  - Overdose [Unknown]
  - Drug prescribing error [Unknown]
